FAERS Safety Report 5029541-3 (Version None)
Quarter: 2006Q2

REPORT INFORMATION
  Report Type: 
  Country: None (occurrence: None)
  Receive Date: 20060620
  Receipt Date: 20060314
  Transmission Date: 20061013
  Serious: Yes (Disabling, Other)
  Sender: FDA-Public Use
  Company Number: PHEH2006US03406

PATIENT
  Age: 62 Year
  Sex: Female
  Weight: 96.6 kg

DRUGS (4)
  1. ATENOLOL [Concomitant]
     Dosage: 25 MG, QD
     Route: 048
  2. DIOVAN HCT [Suspect]
     Indication: HYPERTENSION
     Dosage: 160/UNKNOWN MG
     Route: 048
     Dates: start: 19990101, end: 20060313
  3. LEVOTHROID [Concomitant]
     Dosage: 75 MG, QD
     Route: 048
  4. ALPRAZOLAM [Concomitant]
     Dosage: 0.25 MG, QD
     Route: 048

REACTIONS (6)
  - CAUTERY TO NOSE [None]
  - EPISTAXIS [None]
  - NASAL CAVITY PACKING [None]
  - NASAL ULCER [None]
  - RHINALGIA [None]
  - RHINITIS [None]
